FAERS Safety Report 15615250 (Version 1)
Quarter: 2018Q4

REPORT INFORMATION
  Report Type: Report from Study
  Country: US (occurrence: US)
  Receive Date: 20181114
  Receipt Date: 20181114
  Transmission Date: 20190205
  Serious: Yes (Hospitalization, Other)
  Sender: FDA-Public Use
  Company Number: US-TESARO-2018-TSO1318-US

PATIENT
  Age: 60 Year
  Sex: Female

DRUGS (2)
  1. VITAMIN D [Concomitant]
     Active Substance: CHOLECALCIFEROL
     Indication: PRODUCT USED FOR UNKNOWN INDICATION
     Dosage: 1000 U, UNK
  2. ZEJULA [Suspect]
     Active Substance: NIRAPARIB
     Indication: OVARIAN CANCER
     Dosage: 300 MG, QD
     Route: 048
     Dates: start: 20181008, end: 20181030

REACTIONS (7)
  - Insomnia [Not Recovered/Not Resolved]
  - Blood pressure fluctuation [Unknown]
  - Blood pressure increased [Unknown]
  - Anxiety [Unknown]
  - Hypotension [Unknown]
  - Tachyphrenia [Unknown]
  - Heart injury [Recovered/Resolved]

NARRATIVE: CASE EVENT DATE: 2018
